FAERS Safety Report 18411191 (Version 2)
Quarter: 2021Q1

REPORT INFORMATION
  Report Type: Spontaneous
  Country: US (occurrence: US)
  Receive Date: 20201021
  Receipt Date: 20210121
  Transmission Date: 20210419
  Serious: Yes (Other)
  Sender: FDA-Public Use
  Company Number: US-GLENMARK PHARMACEUTICALS-2020GMK049692

PATIENT

DRUGS (1)
  1. RANOLAZINE EXTENDED?RELEASE TABLETS, 500 MG [Suspect]
     Active Substance: RANOLAZINE
     Indication: ANGINA PECTORIS
     Dosage: UNK
     Route: 048

REACTIONS (9)
  - Dry mouth [Unknown]
  - Constipation [Unknown]
  - Vision blurred [Unknown]
  - Drug ineffective [Unknown]
  - Dyspnoea [Unknown]
  - Abdominal discomfort [Unknown]
  - Diarrhoea [Unknown]
  - Headache [Unknown]
  - Nausea [Unknown]
